FAERS Safety Report 24850898 (Version 3)
Quarter: 2025Q1

REPORT INFORMATION
  Report Type: Report from Study
  Country: US (occurrence: US)
  Receive Date: 20250116
  Receipt Date: 20250326
  Transmission Date: 20250409
  Serious: Yes (Hospitalization)
  Sender: EISAI
  Company Number: US-Eisai-EC-2025-182390

PATIENT
  Age: 59 Year
  Sex: Female
  Weight: 5.17 kg

DRUGS (6)
  1. LENVIMA [Suspect]
     Active Substance: LENVATINIB
     Indication: Endometrial cancer
     Dates: start: 20240718, end: 20240827
  2. LENVIMA [Suspect]
     Active Substance: LENVATINIB
     Dates: start: 20240828, end: 20240828
  3. LENVIMA [Suspect]
     Active Substance: LENVATINIB
     Dates: start: 20240911, end: 20250103
  4. LENVIMA [Suspect]
     Active Substance: LENVATINIB
     Dates: start: 20250116
  5. KEYTRUDA [Concomitant]
     Active Substance: PEMBROLIZUMAB
  6. MAGNESIUM [Concomitant]
     Active Substance: MAGNESIUM

REACTIONS (3)
  - Jugular vein thrombosis [Unknown]
  - Pyrexia [Recovered/Resolved]
  - Deep vein thrombosis [Unknown]

NARRATIVE: CASE EVENT DATE: 20250103
